FAERS Safety Report 14190865 (Version 1)
Quarter: 2017Q4

REPORT INFORMATION
  Report Type: Spontaneous
  Country: US (occurrence: None)
  Receive Date: 20171114
  Receipt Date: 20171114
  Transmission Date: 20180321
  Serious: No
  Sender: FDA-Public Use
  Company Number: None

PATIENT
  Sex: Female
  Weight: 108.86 kg

DRUGS (1)
  1. OTEZLA [Suspect]
     Active Substance: APREMILAST
     Indication: PSORIASIS
     Route: 048
     Dates: start: 201603

REACTIONS (6)
  - Hair texture abnormal [None]
  - Breast atrophy [None]
  - Nail growth abnormal [None]
  - Therapy cessation [None]
  - Weight decreased [None]
  - Melanocytic naevus [None]
